FAERS Safety Report 12921929 (Version 1)
Quarter: 2016Q4

REPORT INFORMATION
  Report Type: Spontaneous
  Country: US (occurrence: US)
  Receive Date: 20161108
  Receipt Date: 20161108
  Transmission Date: 20170207
  Serious: No
  Sender: FDA-Public Use
  Company Number: US-BRISTOL-MYERS SQUIBB COMPANY-BMS-2016-088371

PATIENT
  Sex: Male

DRUGS (1)
  1. OPDIVO [Suspect]
     Active Substance: NIVOLUMAB
     Indication: LUNG NEOPLASM MALIGNANT
     Dosage: UNK
     Route: 065

REACTIONS (7)
  - Infusion site discomfort [Unknown]
  - Weight increased [Unknown]
  - Constipation [Unknown]
  - Insomnia [Recovering/Resolving]
  - Peripheral swelling [Unknown]
  - Pain [Recovering/Resolving]
  - Infusion site erythema [Recovered/Resolved]
